FAERS Safety Report 16716071 (Version 1)
Quarter: 2019Q3

REPORT INFORMATION
  Report Type: Spontaneous
  Country: GB (occurrence: GB)
  Receive Date: 20190819
  Receipt Date: 20190819
  Transmission Date: 20191005
  Serious: Yes (Hospitalization, Other)
  Sender: FDA-Public Use
  Company Number: GB-MYLANLABS-2019M1076591

PATIENT
  Age: 51 Year
  Sex: Male

DRUGS (7)
  1. PARACETAMOL CODEINE [Concomitant]
     Active Substance: ACETAMINOPHEN\CODEINE PHOSPHATE
     Dosage: OCCASIONAL TABLETS
  2. VORICONAZOLE. [Suspect]
     Active Substance: VORICONAZOLE
     Dosage: 180 MILLIGRAM, BID (I.E., 3 MG/KG)
     Route: 042
  3. DOTHIEPINE HYDROCHLORIDE [Concomitant]
     Dosage: 100 MILLIGRAM, QD
  4. DICLOFENAC [Concomitant]
     Active Substance: DICLOFENAC
     Dosage: 50 MILLIGRAM, Q8H
  5. VORICONAZOLE. [Suspect]
     Active Substance: VORICONAZOLE
     Indication: ASPERGILLUS INFECTION
     Dosage: 360 MILLIGRAM (2 LOADING DOSES; I.E., 6 MG/KG)
     Route: 042
  6. TEMAZEPAM. [Concomitant]
     Active Substance: TEMAZEPAM
     Dosage: 10 MILLIGRAM
  7. ITRACONAZOLE. [Suspect]
     Active Substance: ITRACONAZOLE
     Indication: ASPERGILLUS INFECTION
     Dosage: UNK

REACTIONS (9)
  - Hypoglycaemia [Unknown]
  - Respiratory failure [Unknown]
  - Drug abuse [Unknown]
  - Confusional state [Unknown]
  - Feeling drunk [Unknown]
  - Lymphopenia [Unknown]
  - Acute respiratory distress syndrome [Unknown]
  - Drug level increased [Unknown]
  - Drug ineffective [Unknown]
